FAERS Safety Report 7993313-8 (Version None)
Quarter: 2011Q4

REPORT INFORMATION
  Report Type: 
  Country: None (occurrence: None)
  Receive Date: 20111219
  Receipt Date: 20101101
  Transmission Date: 20120403
  Serious: No
  Sender: FDA-Public Use
  Company Number: US-ASTRAZENECA-2010SE52068

PATIENT
  Age: 23886 Day
  Sex: Male
  Weight: 74.8 kg

DRUGS (2)
  1. FENTANYL [Suspect]
     Indication: PAIN
     Route: 062
     Dates: start: 20101008, end: 20101022
  2. CRESTOR [Suspect]
     Indication: BLOOD CHOLESTEROL INCREASED
     Route: 048
     Dates: start: 20100910, end: 20101015

REACTIONS (2)
  - RESPIRATORY RATE DECREASED [None]
  - SEDATION [None]
